FAERS Safety Report 8340285-2 (Version None)
Quarter: 2012Q2

REPORT INFORMATION
  Report Type: 
  Country: None (occurrence: None)
  Receive Date: 20120507
  Receipt Date: 20120501
  Transmission Date: 20120825
  Serious: Yes (Hospitalization)
  Sender: FDA-Public Use
  Company Number: CA-B.I. PHARMACEUTICALS,INC./RIDGEFIELD-2012-CN-00927CN

PATIENT
  Age: 84 Year
  Sex: Male

DRUGS (5)
  1. GLYBURIDE [Concomitant]
  2. VITAMIN B-12 [Concomitant]
  3. LASIX [Concomitant]
  4. DIAMICRON [Concomitant]
  5. PRADAXA [Suspect]
     Indication: ATRIAL FIBRILLATION
     Dosage: 300 MG
     Dates: start: 20120101, end: 20120401

REACTIONS (1)
  - ATRIAL FIBRILLATION [None]
